FAERS Safety Report 16048441 (Version 6)
Quarter: 2020Q4

REPORT INFORMATION
  Report Type: Report from Study
  Country: US (occurrence: US)
  Receive Date: 20190307
  Receipt Date: 20201106
  Transmission Date: 20210113
  Serious: Yes (Other)
  Sender: FDA-Public Use
  Company Number: PHHY2018US201258

PATIENT
  Age: 11 Year
  Sex: Female

DRUGS (3)
  1. CYCLOPHOSPHAMIDE. [Concomitant]
     Active Substance: CYCLOPHOSPHAMIDE
     Indication: CHEMOTHERAPY
     Dosage: UNK
     Route: 065
  2. FLUDARABINE [Concomitant]
     Active Substance: FLUDARABINE PHOSPHATE
     Indication: CHEMOTHERAPY
     Dosage: UNK
     Route: 065
  3. KYMRIAH [Suspect]
     Active Substance: TISAGENLECLEUCEL
     Indication: B-CELL TYPE ACUTE LEUKAEMIA
     Dosage: ONCE/SINGLE
     Route: 041
     Dates: start: 20190806

REACTIONS (12)
  - Aspergillus infection [Unknown]
  - Hypogammaglobulinaemia [Unknown]
  - Urinary tract infection staphylococcal [Unknown]
  - Lymphocyte count decreased [Unknown]
  - Sinusitis [Unknown]
  - Malignant neoplasm progression [Unknown]
  - Treatment failure [Unknown]
  - Acute lymphocytic leukaemia recurrent [Unknown]
  - Cytokine release syndrome [Recovered/Resolved]
  - Pyrexia [Unknown]
  - White blood cell count decreased [Recovering/Resolving]
  - Neutrophil count decreased [Recovered/Resolved]
